FAERS Safety Report 22653505 (Version 1)
Quarter: 2023Q2

REPORT INFORMATION
  Report Type: Spontaneous
  Country: US (occurrence: None)
  Receive Date: 20230627
  Receipt Date: 20230627
  Transmission Date: 20230722
  Serious: No
  Sender: FDA-Public Use
  Company Number: None

PATIENT
  Age: 62 Year
  Sex: Female

DRUGS (1)
  1. XELODA [Suspect]
     Active Substance: CAPECITABINE
     Dosage: FREQUENCY : TWICE A DAY;?
     Route: 048

REACTIONS (5)
  - Limb injury [None]
  - Fracture [None]
  - Palmar-plantar erythrodysaesthesia syndrome [None]
  - Blister [None]
  - Hyperkeratosis [None]

NARRATIVE: CASE EVENT DATE: 20230613
